FAERS Safety Report 7132594-X (Version None)
Quarter: 2010Q4

REPORT INFORMATION
  Report Type: 
  Country: None (occurrence: None)
  Receive Date: 20101130
  Receipt Date: 20101130
  Transmission Date: 20110411
  Serious: Yes (Other)
  Sender: FDA-Public Use
  Company Number: None

PATIENT
  Age: 65 Year
  Sex: Male
  Weight: 100.6985 kg

DRUGS (1)
  1. OXYCONTIN [Suspect]
     Indication: NEUROPATHY PERIPHERAL
     Dosage: 80 X3 PO
     Route: 048

REACTIONS (6)
  - CONDITION AGGRAVATED [None]
  - DISEASE PROGRESSION [None]
  - DRUG EFFECT DECREASED [None]
  - NEUROPATHY PERIPHERAL [None]
  - PRODUCT FORMULATION ISSUE [None]
  - WITHDRAWAL SYNDROME [None]
